FAERS Safety Report 8336623-7 (Version None)
Quarter: 2012Q2

REPORT INFORMATION
  Report Type: 
  Country: None (occurrence: None)
  Receive Date: 20120504
  Receipt Date: 20120428
  Transmission Date: 20120825
  Serious: Yes (Other)
  Sender: FDA-Public Use
  Company Number: US-ASTRAZENECA-2011SE32258

PATIENT
  Age: 46 Year
  Sex: Female

DRUGS (9)
  1. NEXIUM [Suspect]
     Indication: DYSPEPSIA
     Dosage: EVERYDAY
     Route: 048
     Dates: start: 20020101, end: 20110101
  2. ALKA SELTZER [Concomitant]
  3. ESTRADIOL [Concomitant]
  4. KOPIDEX [Concomitant]
     Route: 048
  5. PEPCID [Concomitant]
     Dosage: ONCE OR TWICE A MONTH
  6. NEXIUM [Suspect]
     Indication: GASTROOESOPHAGEAL REFLUX DISEASE
     Dosage: EVERYDAY
     Route: 048
     Dates: start: 20020101, end: 20110101
  7. NEXIUM [Suspect]
     Dosage: 40 MG DAILY ONE HOUR BEFORE BREAKFAST
     Route: 048
     Dates: start: 20100409
  8. BISMUTH SUBSALICYLATE [Concomitant]
  9. NEXIUM [Suspect]
     Dosage: 40 MG DAILY ONE HOUR BEFORE BREAKFAST
     Route: 048
     Dates: start: 20100409

REACTIONS (1)
  - LOWER LIMB FRACTURE [None]
